FAERS Safety Report 15519050 (Version 1)
Quarter: 2018Q4

REPORT INFORMATION
  Report Type: Report from Study
  Country: US (occurrence: US)
  Receive Date: 20181017
  Receipt Date: 20181017
  Transmission Date: 20190205
  Serious: No
  Sender: FDA-Public Use
  Company Number: US-AMGEN-USASL2018097068

PATIENT
  Sex: Female

DRUGS (1)
  1. REPATHA [Suspect]
     Active Substance: EVOLOCUMAB
     Indication: HYPERCHOLESTEROLAEMIA
     Dosage: 140 MG, Q2WK
     Route: 065

REACTIONS (7)
  - Abdominal distension [Unknown]
  - Nasopharyngitis [Unknown]
  - Diarrhoea [Unknown]
  - Nausea [Unknown]
  - Influenza like illness [Unknown]
  - Muscle spasms [Unknown]
  - Feeling abnormal [Unknown]
